FAERS Safety Report 4704469-4 (Version None)
Quarter: 2005Q2

REPORT INFORMATION
  Report Type: 
  Country: None (occurrence: None)
  Receive Date: 20050628
  Receipt Date: 20050615
  Transmission Date: 20051028
  Serious: Yes (Hospitalization)
  Sender: FDA-Public Use
  Company Number: JP_040904501

PATIENT
  Age: 34 Year
  Sex: Female
  Weight: 51 kg

DRUGS (13)
  1. ZYPREXA [Suspect]
     Indication: SCHIZOPHRENIA
     Dosage: 10 MG/1 DAY
     Dates: start: 20040518, end: 20040819
  2. RISPERDAL [Concomitant]
  3. ETHYL LOFLAZEPATE [Concomitant]
  4. ROHYPNOL (FLUNITRAZEPAM) [Concomitant]
  5. TIAPRIDE HYDROCHLORIDE [Concomitant]
  6. CARBAMAZEPINE [Concomitant]
  7. IPD (SUPLATAST TOSILATE) [Concomitant]
  8. GASMOTIN (MOSAPRIDE CITRATE) [Concomitant]
  9. PANTOSIN (PANTETHINE) [Concomitant]
  10. MAGNESIUM OXIDE [Concomitant]
  11. SENNOSIDE A [Concomitant]
  12. SODIUM PICOSULFATE [Concomitant]
  13. SOLDOL E (SENNOSIDE A +B) [Concomitant]

REACTIONS (8)
  - BLOOD ALKALINE PHOSPHATASE INCREASED [None]
  - BLOOD CHOLINESTERASE INCREASED [None]
  - C-REACTIVE PROTEIN INCREASED [None]
  - GAMMA-GLUTAMYLTRANSFERASE INCREASED [None]
  - HEPATIC FUNCTION ABNORMAL [None]
  - INFECTION [None]
  - PYREXIA [None]
  - WHITE BLOOD CELL COUNT INCREASED [None]
